FAERS Safety Report 20492098 (Version 1)
Quarter: 2022Q1

REPORT INFORMATION
  Report Type: Report from Study
  Country: US (occurrence: US)
  Receive Date: 20220218
  Receipt Date: 20220218
  Transmission Date: 20220424
  Serious: Yes (Other)
  Sender: FDA-Public Use
  Company Number: US-TEVA-2018-US-862157

PATIENT
  Age: 58 Year
  Sex: Female

DRUGS (1)
  1. AUSTEDO [Suspect]
     Active Substance: DEUTETRABENAZINE
     Indication: Huntington^s disease
     Dosage: 18 MILLIGRAM DAILY;
     Route: 065
     Dates: start: 20180208

REACTIONS (6)
  - Hallucination [Not Recovered/Not Resolved]
  - Anxiety [Unknown]
  - Restlessness [Unknown]
  - Screaming [Unknown]
  - Crying [Unknown]
  - Anger [Unknown]

NARRATIVE: CASE EVENT DATE: 20180209
